FAERS Safety Report 14627691 (Version 1)
Quarter: 2018Q1

REPORT INFORMATION
  Report Type: Spontaneous
  Country: US (occurrence: US)
  Receive Date: 20180312
  Receipt Date: 20180312
  Transmission Date: 20180509
  Serious: Yes (Life-Threatening, Hospitalization)
  Sender: FDA-Public Use
  Company Number: PHHY2018US040655

PATIENT
  Age: 59 Year
  Sex: Female

DRUGS (2)
  1. PILOCARPINE. [Concomitant]
     Active Substance: PILOCARPINE
     Indication: SJOGREN^S SYNDROME
     Dosage: UNK
     Route: 065
  2. HYDROXYCHLOROQUINE [Suspect]
     Active Substance: HYDROXYCHLOROQUINE
     Indication: SJOGREN^S SYNDROME
     Dosage: UNK
     Route: 065

REACTIONS (13)
  - Rash [Recovering/Resolving]
  - Rash maculo-papular [Recovering/Resolving]
  - Rash generalised [Recovering/Resolving]
  - Leukaemoid reaction [Unknown]
  - Product use in unapproved indication [Unknown]
  - Rash erythematous [Recovering/Resolving]
  - Rash pustular [Unknown]
  - Blister [Unknown]
  - Drug reaction with eosinophilia and systemic symptoms [Recovering/Resolving]
  - Pyrexia [Unknown]
  - Supraventricular tachycardia [Unknown]
  - Vasodilatation [Unknown]
  - Inflammation [Unknown]
